FAERS Safety Report 13882111 (Version 2)
Quarter: 2017Q3

REPORT INFORMATION
  Report Type: Spontaneous
  Country: US (occurrence: US)
  Receive Date: 20170818
  Receipt Date: 20170926
  Transmission Date: 20171127
  Serious: Yes (Other)
  Sender: FDA-Public Use
  Company Number: US-SA-2017SA147118

PATIENT
  Sex: Female
  Weight: 68 kg

DRUGS (2)
  1. ASPIRIN. [Concomitant]
     Active Substance: ASPIRIN
  2. LOVENOX [Suspect]
     Active Substance: ENOXAPARIN SODIUM
     Indication: ATRIAL FIBRILLATION
     Route: 065

REACTIONS (9)
  - Breast necrosis [Unknown]
  - Blood pressure decreased [Unknown]
  - Haematocrit decreased [Unknown]
  - Product use issue [Unknown]
  - Fatigue [Unknown]
  - Stress [Unknown]
  - Injection site pain [Unknown]
  - Burning sensation [Unknown]
  - Haemoglobin decreased [Unknown]
